FAERS Safety Report 6964692-5 (Version None)
Quarter: 2010Q3

REPORT INFORMATION
  Report Type: 
  Country: None (occurrence: None)
  Receive Date: 20100903
  Receipt Date: 20100825
  Transmission Date: 20110219
  Serious: Yes (Other)
  Sender: FDA-Public Use
  Company Number: CA-JNJFOC-20100808705

PATIENT
  Sex: Male
  Weight: 110 kg

DRUGS (8)
  1. REMICADE [Suspect]
     Indication: PSORIASIS
     Route: 042
  2. METFORMIN [Concomitant]
  3. FENOFIBRATE [Concomitant]
  4. DIAZEPAM [Concomitant]
  5. LYRICA [Concomitant]
  6. NORVASC [Concomitant]
  7. HUMALOG [Concomitant]
  8. NPH INSULIN [Concomitant]

REACTIONS (2)
  - BLOOD PRESSURE INCREASED [None]
  - PUNCTURE SITE HAEMORRHAGE [None]
